FAERS Safety Report 5475875-8 (Version None)
Quarter: 2007Q3

REPORT INFORMATION
  Report Type: 
  Country: None (occurrence: None)
  Receive Date: 20070925
  Receipt Date: 20061002
  Transmission Date: 20080115
  Serious: Yes (Disabling)
  Sender: FDA-Public Use
  Company Number: 2003039207

PATIENT
  Age: 45 Year
  Sex: Female

DRUGS (5)
  1. NARDIL [Suspect]
     Indication: MAJOR DEPRESSION
     Dosage: 45 MG (TID), ORAL
     Route: 048
     Dates: start: 19880101
  2. NEURONTIN [Suspect]
     Indication: DEPRESSION
     Dosage: 600 MG (300 MG, 2 IN 1 D)
     Dates: start: 20050101
  3. ORAL CONTRACEPTIVE NOS (ORAL CONTRACEPTIVE NOS) [Concomitant]
  4. CALCIUM CITRATE (CALCIUM CITRATE) [Concomitant]
  5. MULTIVITAMIN [Concomitant]

REACTIONS (20)
  - CHEST PAIN [None]
  - DEPRESSION [None]
  - DIARRHOEA [None]
  - DIZZINESS [None]
  - DRUG INEFFECTIVE [None]
  - DYSTONIA [None]
  - FATIGUE [None]
  - HEADACHE [None]
  - HYPERHIDROSIS [None]
  - HYPERTENSIVE CRISIS [None]
  - MALAISE [None]
  - NAUSEA [None]
  - PALPITATIONS [None]
  - PANIC ATTACK [None]
  - PYREXIA [None]
  - RASH [None]
  - RENAL PAIN [None]
  - TINNITUS [None]
  - VOMITING [None]
  - WEIGHT DECREASED [None]
